FAERS Safety Report 4975762-5 (Version None)
Quarter: 2006Q2

REPORT INFORMATION
  Report Type: 
  Country: None (occurrence: None)
  Receive Date: 20060411
  Receipt Date: 20060329
  Transmission Date: 20061013
  Serious: Yes (Hospitalization)
  Sender: FDA-Public Use
  Company Number: 2006048074

PATIENT
  Age: 54 Year
  Sex: Female
  Weight: 85.6 kg

DRUGS (6)
  1. ATARAX [Suspect]
     Indication: ILL-DEFINED DISORDER
     Dosage: ORAL
     Route: 048
     Dates: start: 20060213
  2. POTASSIUM CHLORIDE [Concomitant]
  3. PROPOFOL [Concomitant]
  4. URBANYL (CLOBAZAM) [Concomitant]
  5. KENZEN (CANDESARTAN CILEXETIL) [Concomitant]
  6. SINGULAIR [Concomitant]

REACTIONS (13)
  - ALANINE AMINOTRANSFERASE INCREASED [None]
  - AURICULAR SWELLING [None]
  - BLOOD CREATININE INCREASED [None]
  - ECTROPION [None]
  - FACE OEDEMA [None]
  - GAMMA-GLUTAMYLTRANSFERASE INCREASED [None]
  - INFLAMMATION [None]
  - OEDEMA PERIPHERAL [None]
  - PETECHIAE [None]
  - PRURITUS [None]
  - PYREXIA [None]
  - SKIN EXFOLIATION [None]
  - TOXIC SKIN ERUPTION [None]
